FAERS Safety Report 16318509 (Version 1)
Quarter: 2019Q2

REPORT INFORMATION
  Report Type: Spontaneous
  Country: US (occurrence: US)
  Receive Date: 20190410
  Receipt Date: 20190410
  Transmission Date: 20190711
  Serious: Yes (Hospitalization)
  Sender: FDA-Public Use
  Company Number: None

PATIENT
  Age: 55 Year
  Sex: Male

DRUGS (2)
  1. PULMOZYME [Suspect]
     Active Substance: DORNASE ALFA
     Indication: COUGH
     Dosage: ?          OTHER DOSE:2.5 ML;?
     Route: 055
     Dates: start: 20171209
  2. PULMOZYME [Suspect]
     Active Substance: DORNASE ALFA
     Indication: RESPIRATORY DISORDER
     Dosage: ?          OTHER DOSE:2.5 ML;?
     Route: 055
     Dates: start: 20171209

REACTIONS (1)
  - Lung infection [None]

NARRATIVE: CASE EVENT DATE: 20190401
